FAERS Safety Report 10478067 (Version 1)
Quarter: 2014Q3

REPORT INFORMATION
  Report Type: Spontaneous
  Country: US (occurrence: None)
  Receive Date: 20140924
  Receipt Date: 20140924
  Transmission Date: 20150326
  Serious: Yes (Other)
  Sender: FDA-Public Use
  Company Number: 2011S1000666

PATIENT
  Age: 73 Year
  Sex: Female

DRUGS (6)
  1. FLEET [Suspect]
     Active Substance: BISACODYL\GLYCERIN\MINERAL OIL\SODIUM PHOSPHATE, DIBASIC\SODIUM PHOSPHATE, MONOBASIC
     Indication: COLONOSCOPY
     Route: 054
  2. THYROID [Concomitant]
     Active Substance: LEVOTHYROXINE\LIOTHYRONINE
  3. LOVASTATIN. [Concomitant]
     Active Substance: LOVASTATIN
  4. ASPIRIN (ACETYLSALICYLIC ACID) [Concomitant]
     Active Substance: ASPIRIN
  5. PHOSPHO-SODA [Suspect]
     Active Substance: SODIUM PHOSPHATE, DIBASIC\SODIUM PHOSPHATE, MONOBASIC
     Indication: COLONOSCOPY
     Route: 048
     Dates: start: 20030327, end: 20030328
  6. ZESTORETIC (HYDROCHLORTHIAZIDE, LISINOPRIL) [Concomitant]

REACTIONS (32)
  - Dyspepsia [None]
  - Renal tubular disorder [None]
  - Aphagia [None]
  - Hypovolaemia [None]
  - Blood uric acid increased [None]
  - Fatigue [None]
  - Nausea [None]
  - Renal failure acute [None]
  - Haematuria [None]
  - Uterine leiomyoma [None]
  - Renal tubular necrosis [None]
  - Metabolic acidosis [None]
  - Nephrogenic anaemia [None]
  - Blood parathyroid hormone increased [None]
  - Tubulointerstitial nephritis [None]
  - Gastritis [None]
  - Renal vasculitis [None]
  - Dizziness [None]
  - Headache [None]
  - Renal osteodystrophy [None]
  - Glomerulonephritis [None]
  - Crystal nephropathy [None]
  - Asthenia [None]
  - Malaise [None]
  - Perirenal haematoma [None]
  - Renal cyst [None]
  - Hyperphosphataemia [None]
  - Renal hypertension [None]
  - Diarrhoea [None]
  - Renal failure chronic [None]
  - Nephrocalcinosis [None]
  - Chest discomfort [None]

NARRATIVE: CASE EVENT DATE: 200305
